FAERS Safety Report 11990401 (Version 2)
Quarter: 2016Q1

REPORT INFORMATION
  Report Type: Spontaneous
  Country: US (occurrence: US)
  Receive Date: 20160202
  Receipt Date: 20160324
  Transmission Date: 20160526
  Serious: Yes (Hospitalization)
  Sender: FDA-Public Use
  Company Number: US-BAYER-2016-018745

PATIENT
  Age: 17 Year
  Sex: Female

DRUGS (4)
  1. REGLAN [Concomitant]
     Active Substance: METOCLOPRAMIDE HYDROCHLORIDE
  2. MIRENA [Suspect]
     Active Substance: LEVONORGESTREL
     Indication: CONTRACEPTION
     Dosage: 20 MCG/24HR, CONT
     Route: 015
     Dates: start: 20130213, end: 20130626
  3. TRAMADOL. [Concomitant]
     Active Substance: TRAMADOL
     Dosage: 60 MG, UNK
     Dates: start: 20130623
  4. MOTRIN [Concomitant]
     Active Substance: IBUPROFEN

REACTIONS (4)
  - Abdominal pain lower [None]
  - Device issue [None]
  - Uterine scar [None]
  - Uterine perforation [None]

NARRATIVE: CASE EVENT DATE: 201306
